FAERS Safety Report 7428800-4 (Version None)
Quarter: 2011Q2

REPORT INFORMATION
  Report Type: 
  Country: None (occurrence: None)
  Receive Date: 20110413
  Receipt Date: 20110330
  Transmission Date: 20111010
  Serious: Yes (Life-Threatening)
  Sender: FDA-Public Use
  Company Number: 029024

PATIENT
  Sex: Male

DRUGS (15)
  1. KEPPRA [Suspect]
     Indication: EPILEPSY
     Dosage: 500 MG BID ORAL
     Route: 048
     Dates: start: 20110118, end: 20110226
  2. TOPIRAMATE [Suspect]
     Indication: EPILEPSY
     Dosage: 200 MG ORAL, 300 MG ORAL
     Route: 048
     Dates: start: 20101009
  3. TOPIRAMATE [Suspect]
     Indication: EPILEPSY
     Dosage: 200 MG ORAL, 300 MG ORAL
     Route: 048
     Dates: start: 20101001, end: 20101008
  4. TEGRETOL [Concomitant]
  5. EXCEGRAN [Concomitant]
  6. RISPERDAL [Concomitant]
  7. CEROCRAL [Concomitant]
  8. GASTER /00706001/ [Concomitant]
  9. WARFARIN SODIUM [Concomitant]
  10. KOLANTYL /00130401/ [Concomitant]
  11. GABAPENTIN [Concomitant]
  12. LASIX [Concomitant]
  13. PHENOBAL /00023201/ [Concomitant]
  14. ASPIRIN [Concomitant]
  15. MYSLEE [Concomitant]

REACTIONS (8)
  - GRAND MAL CONVULSION [None]
  - SUICIDE ATTEMPT [None]
  - SOMNOLENCE [None]
  - ABNORMAL BEHAVIOUR [None]
  - ANXIETY [None]
  - INCOHERENT [None]
  - DEPRESSIVE SYMPTOM [None]
  - PSYCHOTIC DISORDER DUE TO A GENERAL MEDICAL CONDITION [None]
